FAERS Safety Report 12841853 (Version 2)
Quarter: 2016Q4

REPORT INFORMATION
  Report Type: Spontaneous
  Country: US (occurrence: US)
  Receive Date: 20161012
  Receipt Date: 20161024
  Transmission Date: 20170207
  Serious: Yes (Hospitalization)
  Sender: FDA-Public Use
  Company Number: US-BIOGEN-2016BI00300539

PATIENT
  Age: 46 Year
  Sex: Male

DRUGS (1)
  1. AVONEX [Suspect]
     Active Substance: INTERFERON BETA-1A
     Indication: MULTIPLE SCLEROSIS
     Route: 030
     Dates: start: 201306

REACTIONS (5)
  - Constipation [Unknown]
  - Drug dose omission [Recovered/Resolved]
  - Device use error [Recovered/Resolved]
  - Vomiting [Unknown]
  - Hernia [Unknown]

NARRATIVE: CASE EVENT DATE: 201609
